FAERS Safety Report 8433918-3 (Version None)
Quarter: 2012Q2

REPORT INFORMATION
  Report Type: 
  Country: None (occurrence: None)
  Receive Date: 20120613
  Receipt Date: 20120605
  Transmission Date: 20120825
  Serious: Yes (Hospitalization)
  Sender: FDA-Public Use
  Company Number: FR-PFIZER INC-2012134376

PATIENT
  Age: 62 Year
  Sex: Female

DRUGS (4)
  1. SULFASALAZINE [Suspect]
     Indication: RHEUMATOID ARTHRITIS
     Dosage: 1 G, 4X/DAY
     Route: 048
     Dates: end: 20120504
  2. HUMIRA [Suspect]
     Indication: RHEUMATOID ARTHRITIS
     Dosage: 40 MG, 1X3WEEK
     Route: 058
     Dates: start: 20120303, end: 20120303
  3. RABEPRAZOLE SODIUM [Suspect]
     Indication: GASTROOESOPHAGEAL REFLUX PROPHYLAXIS
     Dosage: 10 MG, UNK
     Route: 048
     Dates: end: 20120508
  4. VALSARTAN [Concomitant]
     Dosage: 40 MG, 1X/DAY

REACTIONS (1)
  - CUTANEOUS LUPUS ERYTHEMATOSUS [None]
